FAERS Safety Report 5532386-9 (Version None)
Quarter: 2007Q4

REPORT INFORMATION
  Report Type: 
  Country: None (occurrence: None)
  Receive Date: 20071203
  Receipt Date: 20071128
  Transmission Date: 20080405
  Serious: Yes (Death, Hospitalization)
  Sender: FDA-Public Use
  Company Number: GB-ROXANE LABORATORIES, INC-2007-BP-25206RO

PATIENT
  Age: 82 Year
  Sex: Male

DRUGS (11)
  1. MIDAZOLAM HCL [Suspect]
     Indication: ANXIETY
     Route: 058
  2. MORPHINE [Suspect]
     Indication: ANALGESIA
     Route: 058
  3. DEXAMETHASONE [Concomitant]
  4. SIMVASTATIN [Concomitant]
  5. ENOXAPARIN SODIUM [Concomitant]
  6. BENDROFLUMETHIAZIDE [Concomitant]
  7. IRBESARTAN [Concomitant]
  8. OMEPRAZOLE [Concomitant]
  9. TRIMETHOPRIM [Concomitant]
     Indication: URINARY TRACT INFECTION
  10. METRONIDAZOLE [Concomitant]
     Indication: CLOSTRIDIUM DIFFICILE COLITIS
  11. TRAMADOL HCL [Concomitant]
     Indication: PAIN
     Route: 048

REACTIONS (4)
  - ANXIETY [None]
  - DISSEMINATED INTRAVASCULAR COAGULATION [None]
  - DYSPHAGIA [None]
  - EXTRAPYRAMIDAL DISORDER [None]
